FAERS Safety Report 5378195-5 (Version None)
Quarter: 2007Q3

REPORT INFORMATION
  Report Type: 
  Country: None (occurrence: None)
  Receive Date: 20070705
  Receipt Date: 20070625
  Transmission Date: 20080115
  Serious: Yes (Hospitalization)
  Sender: FDA-Public Use
  Company Number: US-JNJFOC-20070501981

PATIENT
  Sex: Female
  Weight: 97.07 kg

DRUGS (9)
  1. DURAGESIC-100 [Suspect]
     Indication: PAIN
     Route: 062
  2. ZYRTEC [Concomitant]
     Indication: MULTIPLE ALLERGIES
     Route: 048
  3. HYDROMORPHONE HCL [Concomitant]
     Indication: PAIN
     Route: 048
  4. LISINOPRIL [Concomitant]
     Indication: BLOOD PRESSURE
     Route: 048
  5. CRESTOR [Concomitant]
     Route: 048
  6. LORAZEPAM [Concomitant]
     Indication: ANXIETY
     Dosage: AT BEDTIME
     Route: 048
  7. TOPAMAX [Concomitant]
     Indication: PAIN
     Route: 048
  8. METFORMIN [Concomitant]
     Indication: DIABETES MELLITUS
     Route: 048
  9. PREVACID [Concomitant]
     Indication: GASTROINTESTINAL DISORDER
     Route: 048

REACTIONS (5)
  - BACK PAIN [None]
  - FAECAL INCONTINENCE [None]
  - INFLUENZA [None]
  - UNEVALUABLE EVENT [None]
  - URINARY INCONTINENCE [None]
